FAERS Safety Report 21220868 (Version 2)
Quarter: 2022Q3

REPORT INFORMATION
  Report Type: Report from Study
  Country: FR (occurrence: None)
  Receive Date: 20220817
  Receipt Date: 20220819
  Transmission Date: 20221027
  Serious: Yes (Hospitalization)
  Sender: FDA-Public Use
  Company Number: FR-ROCHE-3159485

PATIENT
  Age: 79 Year
  Sex: Female
  Weight: 55 kg

DRUGS (6)
  1. TIRAGOLUMAB [Suspect]
     Active Substance: TIRAGOLUMAB
     Indication: Colorectal cancer metastatic
     Dosage: START DATE OF MOST RECENT DOSE (600MG) OF STUDY DRUG PRIOR TO AE: 20/JUL/2022 1:16 PM AND ENDED ON 1
     Route: 042
     Dates: start: 20200813
  2. ATEZOLIZUMAB [Suspect]
     Active Substance: ATEZOLIZUMAB
     Indication: Colorectal cancer metastatic
     Dosage: START DATE OF MOST RECENT DOSE (1200MG) OF STUDY DRUG PRIOR TO AE 20/JUL/2022 2:32 PM
     Route: 041
     Dates: start: 20200813
  3. LOPERAMIDE [Concomitant]
     Active Substance: LOPERAMIDE
     Indication: Diarrhoea
     Route: 048
  4. LEVOCETIRIZINE [Concomitant]
     Active Substance: LEVOCETIRIZINE
     Indication: Pruritus
     Route: 048
     Dates: start: 20201014
  5. GLYCERIN\MINERAL OIL\PETROLATUM [Concomitant]
     Active Substance: GLYCERIN\MINERAL OIL\PETROLATUM
     Indication: Pruritus
     Route: 061
     Dates: start: 20201014
  6. BETAMETHASONE [Concomitant]
     Active Substance: BETAMETHASONE
     Indication: Pruritus
     Route: 061
     Dates: start: 202106

REACTIONS (1)
  - Pemphigoid [Not Recovered/Not Resolved]

NARRATIVE: CASE EVENT DATE: 20220810
